FAERS Safety Report 7907890-6 (Version None)
Quarter: 2011Q4

REPORT INFORMATION
  Report Type: 
  Country: None (occurrence: None)
  Receive Date: 20111110
  Receipt Date: 20111103
  Transmission Date: 20120403
  Serious: Yes (Hospitalization)
  Sender: FDA-Public Use
  Company Number: BR-ASTRAZENECA-2011SE66798

PATIENT
  Age: 60 Year
  Sex: Female
  Weight: 78 kg

DRUGS (5)
  1. DIGESAN [Concomitant]
     Route: 048
     Dates: start: 20050101
  2. ATACAND HCT [Suspect]
     Indication: HYPERTENSION
     Dosage: 16/12.5 MG, ONCE DAILY
     Route: 048
     Dates: start: 20050101
  3. ROXITRAN [Concomitant]
     Route: 048
     Dates: start: 20010101
  4. NATURETTI [Concomitant]
     Route: 048
     Dates: start: 19910101
  5. NEXIUM [Suspect]
     Indication: HIATUS HERNIA
     Route: 048
     Dates: start: 20050101

REACTIONS (1)
  - BREAST CANCER [None]
